FAERS Safety Report 9763641 (Version 1)
Quarter: 2013Q4

REPORT INFORMATION
  Report Type: Spontaneous
  Country: US (occurrence: US)
  Receive Date: 20131216
  Receipt Date: 20131216
  Transmission Date: 20140711
  Serious: No
  Sender: FDA-Public Use
  Company Number: US-BIOGENIDEC-2013BI108992

PATIENT
  Sex: Female

DRUGS (11)
  1. TECFIDERA [Suspect]
     Indication: MULTIPLE SCLEROSIS
     Route: 048
     Dates: start: 201309
  2. TECFIDERA [Suspect]
     Indication: MULTIPLE SCLEROSIS
     Route: 048
  3. ZOLOFT [Concomitant]
  4. MARINOL [Concomitant]
  5. NEURONTIN [Concomitant]
  6. ADDERALL [Concomitant]
  7. WELLBUTRIN [Concomitant]
  8. LORTAB [Concomitant]
  9. ATIVAN [Concomitant]
  10. CALCIUM [Concomitant]
  11. VITAMIN D [Concomitant]

REACTIONS (3)
  - Mental impairment [Unknown]
  - Hot flush [Unknown]
  - Diarrhoea [Unknown]
